FAERS Safety Report 8789695 (Version 1)
Quarter: 2012Q4

REPORT INFORMATION
  Report Type: Spontaneous
  Country: FR (occurrence: None)
  Receive Date: 20120906
  Receipt Date: 20120906
  Transmission Date: 20130627
  Serious: Yes (Hospitalization)
  Sender: FDA-Public Use
  Company Number: 2012-003206

PATIENT
  Age: 74 Year
  Sex: Female

DRUGS (4)
  1. ACTONEL (RISEDRONATE SODIUM) TABLET, 35MG [Suspect]
     Dosage: ONCE WEEKLY
     Route: 048
  2. NEURONTIN [Suspect]
     Dosage: 1 dosage from twice daily
     Route: 048
     Dates: start: 2002
  3. SERETIDE [Suspect]
     Dosage: respiratory
     Route: 055
  4. PARACETAMOL + CODEINE [Suspect]
     Route: 048

REACTIONS (2)
  - Eosinophilia [None]
  - Diarrhoea [None]
